FAERS Safety Report 8613945-3 (Version None)
Quarter: 2012Q3

REPORT INFORMATION
  Report Type: 
  Country: None (occurrence: None)
  Receive Date: 20120823
  Receipt Date: 20120817
  Transmission Date: 20120928
  Serious: No
  Sender: FDA-Public Use
  Company Number: US-PFIZER INC-2012202627

PATIENT
  Age: 57 Year
  Sex: Female
  Weight: 71.655 kg

DRUGS (1)
  1. PREMARIN [Suspect]
     Indication: HORMONE REPLACEMENT THERAPY
     Dosage: 0.5 MG, ONCE A WEEK
     Route: 067
     Dates: end: 20120501

REACTIONS (2)
  - VAGINAL INFECTION [None]
  - APPLICATION SITE REACTION [None]
